FAERS Safety Report 7828940-1 (Version None)
Quarter: 2011Q4

REPORT INFORMATION
  Report Type: 
  Country: None (occurrence: None)
  Receive Date: 20111020
  Receipt Date: 20111007
  Transmission Date: 20120403
  Serious: Yes (Hospitalization, Other)
  Sender: FDA-Public Use
  Company Number: US-ELI_LILLY_AND_COMPANY-US201011002411

PATIENT
  Age: 59 Year
  Sex: Female

DRUGS (2)
  1. FORTEO [Suspect]
     Dosage: 20 UG, DAILY (1/D)
     Route: 065
  2. FORTEO [Suspect]
     Indication: OSTEOPOROSIS
     Dosage: 20 UG, DAILY (1/D)
     Route: 065

REACTIONS (9)
  - INJECTION SITE DYSAESTHESIA [None]
  - OEDEMA PERIPHERAL [None]
  - DIZZINESS [None]
  - NEPHROLITHIASIS [None]
  - URINARY TRACT INFECTION [None]
  - SPINAL FRACTURE [None]
  - FALL [None]
  - DRUG DOSE OMISSION [None]
  - PRURITUS GENERALISED [None]
